FAERS Safety Report 11058848 (Version 1)
Quarter: 2015Q2

REPORT INFORMATION
  Report Type: Report from Study
  Country: US (occurrence: None)
  Receive Date: 20150420
  Receipt Date: 20150420
  Transmission Date: 20150821
  Serious: No
  Sender: FDA-Public Use
  Company Number: AEGR001177

PATIENT
  Age: 54 Year
  Sex: Male
  Weight: 81.2 kg

DRUGS (1)
  1. JUXTAPID [Suspect]
     Active Substance: LOMITAPIDE MESYLATE
     Indication: TYPE IIA HYPERLIPIDAEMIA
     Route: 048
     Dates: start: 20150110, end: 20150224

REACTIONS (7)
  - Chest pain [None]
  - Diarrhoea [None]
  - Sleep apnoea syndrome [None]
  - Gastrointestinal disorder [None]
  - Dizziness [None]
  - Psychomotor hyperactivity [None]
  - Palpitations [None]

NARRATIVE: CASE EVENT DATE: 201501
